FAERS Safety Report 9006004 (Version 1)
Quarter: 2013Q1

REPORT INFORMATION
  Report Type: Spontaneous
  Country: US (occurrence: US)
  Receive Date: 20130109
  Receipt Date: 20130109
  Transmission Date: 20140127
  Serious: No
  Sender: FDA-Public Use
  Company Number: US-PFIZER INC-2004079962

PATIENT
  Age: 13 Year
  Sex: Female

DRUGS (2)
  1. MOTRIN [Suspect]
     Indication: MUSCLE SPASMS
     Dosage: 400 MG, 1 IN 1 DAY
     Route: 048
     Dates: start: 20041006
  2. PARACETAMOL [Suspect]
     Indication: MUSCLE SPASMS
     Dosage: 130 MG, 1 IN 1 DAY
     Dates: start: 20041006

REACTIONS (3)
  - Chest pain [Unknown]
  - Headache [Unknown]
  - Abdominal pain upper [Unknown]
